FAERS Safety Report 12203816 (Version 2)
Quarter: 2017Q3

REPORT INFORMATION
  Report Type: Spontaneous
  Country: FR (occurrence: FR)
  Receive Date: 20160323
  Receipt Date: 20170712
  Transmission Date: 20171127
  Serious: Yes (Hospitalization)
  Sender: FDA-Public Use
  Company Number: FR-ASTRAZENECA-2016SE30501

PATIENT
  Age: 84 Year
  Sex: Female

DRUGS (13)
  1. KARDEGIC [Concomitant]
     Active Substance: ASPIRIN LYSINE
  2. UVEDOSE [Concomitant]
     Active Substance: CHOLECALCIFEROL
  3. INEXIUM [Suspect]
     Active Substance: ESOMEPRAZOLE
     Dosage: 40.0MG UNKNOWN
     Route: 048
     Dates: start: 201506
  4. KESTIN [Suspect]
     Active Substance: EBASTINE
     Route: 048
     Dates: start: 201512
  5. FUROSEMIDE. [Concomitant]
     Active Substance: FUROSEMIDE
  6. NERISONE [Suspect]
     Active Substance: DIFLUCORTOLONE VALERATE
     Route: 062
  7. PROCORALAN [Concomitant]
     Active Substance: IVABRADINE
  8. IKOREL [Suspect]
     Active Substance: NICORANDIL
     Indication: ANGINA PECTORIS
     Route: 048
     Dates: start: 2014
  9. LESCOL [Concomitant]
     Active Substance: FLUVASTATIN SODIUM
  10. DEPAKINE [Concomitant]
     Active Substance: VALPROATE SODIUM
  11. COVERSYL [Concomitant]
     Active Substance: PERINDOPRIL
  12. DOLIPRANE [Concomitant]
     Active Substance: ACETAMINOPHEN
  13. TANGANIL [Concomitant]
     Active Substance: ACETYLLEUCINE

REACTIONS (1)
  - Skin ulcer [Recovered/Resolved]

NARRATIVE: CASE EVENT DATE: 2015
